FAERS Safety Report 10557191 (Version 1)
Quarter: 2014Q4

REPORT INFORMATION
  Report Type: Spontaneous
  Country: US (occurrence: None)
  Receive Date: 20141030
  Receipt Date: 20141030
  Transmission Date: 20150529
  Serious: Yes (Life-Threatening, Hospitalization, Disabling)
  Sender: FDA-Public Use
  Company Number: None

PATIENT
  Age: 80 Year
  Sex: Male
  Weight: 77.11 kg

DRUGS (3)
  1. REMERON - CLONIDINE [Concomitant]
  2. ELIQUIS [Suspect]
     Active Substance: APIXABAN
     Indication: ATRIAL FIBRILLATION
     Route: 048
     Dates: start: 20140905, end: 20140907
  3. XARELTO [Concomitant]
     Active Substance: RIVAROXABAN

REACTIONS (2)
  - Atrial fibrillation [None]
  - Cerebrovascular accident [None]

NARRATIVE: CASE EVENT DATE: 20140907
